FAERS Safety Report 18160167 (Version 2)
Quarter: 2020Q3

REPORT INFORMATION
  Report Type: Spontaneous
  Country: US (occurrence: US)
  Receive Date: 20200817
  Receipt Date: 20200819
  Transmission Date: 20201103
  Serious: Yes (Other)
  Sender: FDA-Public Use
  Company Number: US-PFIZER INC-2020317865

PATIENT
  Age: 41 Year
  Sex: Male
  Weight: 129.27 kg

DRUGS (1)
  1. PHENYTOIN. [Suspect]
     Active Substance: PHENYTOIN
     Indication: SEIZURE
     Dosage: 600 MG, 1X/DAY(100MG, 6 OF THEM AT ONCE AT NIGHT TIME, BY MOUTH  )
     Route: 048
     Dates: start: 1992, end: 1992

REACTIONS (2)
  - Road traffic accident [Unknown]
  - Seizure [Recovered/Resolved]

NARRATIVE: CASE EVENT DATE: 1992
